FAERS Safety Report 11339975 (Version 3)
Quarter: 2015Q3

REPORT INFORMATION
  Report Type: Spontaneous
  Country: US (occurrence: None)
  Receive Date: 20150803
  Receipt Date: 20150820
  Transmission Date: 20151125
  Serious: Yes (Death, Life-Threatening, Other)
  Sender: FDA-Public Use
  Company Number: 1713747-2015-999235

PATIENT
  Age: 60 Year
  Sex: Male
  Weight: 125 kg

DRUGS (12)
  1. FLONASE [Concomitant]
     Active Substance: FLUTICASONE PROPIONATE
  2. ALPRAZOLAM. [Concomitant]
     Active Substance: ALPRAZOLAM
  3. PROCRIT [Concomitant]
     Active Substance: ERYTHROPOIETIN
  4. B COMPLEX VITAMIN [Concomitant]
  5. AMLODIPINE [Concomitant]
     Active Substance: AMLODIPINE BESYLATE
  6. ALUMINUM AND MAGNESIUM HYDROXIDE [Concomitant]
  7. ASPIRIN. [Concomitant]
     Active Substance: ASPIRIN
  8. LOPID [Concomitant]
     Active Substance: GEMFIBROZIL
  9. DELFLEX [Suspect]
     Active Substance: CALCIUM CHLORIDE\DEXTROSE MONOHYDRATE\MAGNESIUM CHLORIDE\SODIUM CHLORIDE\SODIUM LACTATE
     Indication: PERITONEAL DIALYSIS
     Route: 033
  10. HUMULIN 70/30 INSULIN [Concomitant]
  11. LIBERTY CYCLER [Concomitant]
     Active Substance: DEVICE
  12. LBERTY CYCLER CASSETTE [Concomitant]

REACTIONS (4)
  - Chest discomfort [None]
  - Respiratory arrest [None]
  - Dyspnoea [None]
  - Cardiac arrest [None]

NARRATIVE: CASE EVENT DATE: 20150726
